FAERS Safety Report 13680798 (Version 1)
Quarter: 2017Q2

REPORT INFORMATION
  Report Type: Spontaneous
  Country: SE (occurrence: TZ)
  Receive Date: 20170623
  Receipt Date: 20170623
  Transmission Date: 20170830
  Serious: Yes (Other)
  Sender: FDA-Public Use
  Company Number: SE-CIPLA LTD.-2017TZ10972

PATIENT

DRUGS (8)
  1. NEVIRAPINE. [Suspect]
     Active Substance: NEVIRAPINE
     Indication: HIV INFECTION WHO CLINICAL STAGE III
     Dosage: UNK, AS FIRST LINE TREATMENT FOR 73.49 MONTHS
     Route: 065
  2. LAMIVUDINE. [Suspect]
     Active Substance: LAMIVUDINE
     Indication: HIV INFECTION WHO CLINICAL STAGE III
     Dosage: UNK, AS FIRST LINE TREATMENT FOR 73.49 MONTHS
     Route: 065
  3. DIDANOSINE. [Suspect]
     Active Substance: DIDANOSINE
     Indication: HIV INFECTION WHO CLINICAL STAGE III
     Dosage: UNK, AS SECOND LINE TREATMENT FOR 45.57 MONTHS
     Route: 065
  4. EMTRICITABINE [Suspect]
     Active Substance: EMTRICITABINE
     Indication: HIV INFECTION WHO CLINICAL STAGE III
     Dosage: UNK
     Route: 065
  5. RITONAVIR. [Suspect]
     Active Substance: RITONAVIR
     Indication: HIV INFECTION WHO CLINICAL STAGE III
     Dosage: UNK, AS SECOND LINE TREATMENT FOR 45.57 MONTHS
     Route: 065
  6. LOPINAVIR [Suspect]
     Active Substance: LOPINAVIR
     Indication: HIV INFECTION WHO CLINICAL STAGE III
     Dosage: UNK, AS SECOND LINE TREATMENT FOR 45.57 MONTHS
     Route: 065
  7. ZIDOVUDINE. [Suspect]
     Active Substance: ZIDOVUDINE
     Indication: HIV INFECTION WHO CLINICAL STAGE III
     Dosage: UNK, AS FIRST LINE TREATMENT FOR 73.49 MONTHS
     Route: 065
  8. ABACAVIR. [Suspect]
     Active Substance: ABACAVIR
     Indication: HIV INFECTION WHO CLINICAL STAGE III
     Dosage: UNK, AS SECOND LINE TREATMENT FOR 45.57 MONTHS
     Route: 065

REACTIONS (2)
  - Treatment failure [Unknown]
  - Drug resistance [Unknown]
